FAERS Safety Report 19702386 (Version 1)
Quarter: 2021Q3

REPORT INFORMATION
  Report Type: Spontaneous
  Country: US (occurrence: US)
  Receive Date: 20210815
  Receipt Date: 20210815
  Transmission Date: 20211014
  Serious: No
  Sender: FDA-Public Use
  Company Number: US-ORGANON-O2108USA000391

PATIENT
  Sex: Female

DRUGS (3)
  1. ASMANEX HFA [Suspect]
     Active Substance: MOMETASONE FUROATE
     Dosage: 1 PUFF TWICE DAILY
     Dates: start: 202106, end: 20210730
  2. ASMANEX HFA [Suspect]
     Active Substance: MOMETASONE FUROATE
     Dosage: 1 PUFF TWICE DAILY
     Dates: start: 202106
  3. ASMANEX HFA [Suspect]
     Active Substance: MOMETASONE FUROATE
     Dosage: UNK

REACTIONS (7)
  - Nasal congestion [Unknown]
  - Product dose omission issue [Unknown]
  - Device malfunction [Unknown]
  - Device difficult to use [Unknown]
  - Cough [Unknown]
  - Incorrect dose administered [Unknown]
  - Poor quality device used [Unknown]

NARRATIVE: CASE EVENT DATE: 2021
